FAERS Safety Report 7691829-5 (Version None)
Quarter: 2011Q3

REPORT INFORMATION
  Report Type: 
  Country: None (occurrence: None)
  Receive Date: 20110818
  Receipt Date: 20110809
  Transmission Date: 20111222
  Serious: Yes (Hospitalization)
  Sender: FDA-Public Use
  Company Number: US-ASTRAZENECA-2011SE47945

PATIENT
  Sex: Male

DRUGS (9)
  1. SEROQUEL [Suspect]
     Route: 048
     Dates: start: 20050101
  2. LAMICTAL [Concomitant]
  3. PRAVASTATIN [Concomitant]
     Indication: BLOOD CHOLESTEROL INCREASED
  4. VITAMIN TAB [Concomitant]
  5. ALBUTEROL SULFATE AUTOHALER [Concomitant]
     Indication: ASTHMA
     Route: 055
  6. LAMISIL [Concomitant]
     Indication: TINEA PEDIS
  7. SOMA [Concomitant]
     Indication: BACK PAIN
  8. SEROQUEL [Suspect]
     Indication: BIPOLAR DISORDER
     Route: 048
     Dates: start: 20050101
  9. SEROQUEL [Suspect]
     Route: 048

REACTIONS (3)
  - PNEUMONIA [None]
  - PULMONARY EMBOLISM [None]
  - INSOMNIA [None]
